FAERS Safety Report 17591511 (Version 1)
Quarter: 2020Q1

REPORT INFORMATION
  Report Type: Report from Study
  Country: US (occurrence: US)
  Receive Date: 20200327
  Receipt Date: 20200327
  Transmission Date: 20200409
  Serious: Yes (Other)
  Sender: FDA-Public Use
  Company Number: US-MYLANLABS-2020M1022811

PATIENT
  Sex: Female
  Weight: 61.22 kg

DRUGS (1)
  1. GLATIRAMER ACETATE INJECTION [Suspect]
     Active Substance: GLATIRAMER ACETATE
     Indication: RELAPSING-REMITTING MULTIPLE SCLEROSIS
     Dosage: 40 MILLIGRAM, 3XW (3 TIMES PER WEEK)
     Route: 058

REACTIONS (13)
  - Injection site pain [Recovering/Resolving]
  - Urine analysis abnormal [Unknown]
  - Condition aggravated [Unknown]
  - Vision blurred [Unknown]
  - Pyrexia [Unknown]
  - Muscular weakness [Unknown]
  - Feeling abnormal [Unknown]
  - Injection site mass [Unknown]
  - Chills [Unknown]
  - Tremor [Unknown]
  - Dizziness [Unknown]
  - Headache [Unknown]
  - Asthenia [Unknown]
